FAERS Safety Report 8131164-4 (Version None)
Quarter: 2012Q1

REPORT INFORMATION
  Report Type: 
  Country: None (occurrence: None)
  Receive Date: 20120213
  Receipt Date: 20120131
  Transmission Date: 20120608
  Serious: Yes (Hospitalization, Other)
  Sender: FDA-Public Use
  Company Number: US-JNJFOC-20110801411

PATIENT
  Sex: Male
  Weight: 87.09 kg

DRUGS (12)
  1. REMICADE [Suspect]
     Dosage: 5 INFUSIONS AT 10MG/KG; A TOTAL OF 53 INFUSIONS
     Route: 042
     Dates: start: 20110623
  2. PREDNISONE [Concomitant]
  3. PRILOSEC [Concomitant]
  4. REMICADE [Suspect]
     Route: 042
     Dates: start: 20110223
  5. MULTI-VITAMINS [Concomitant]
  6. NEXIUM [Concomitant]
  7. REMICADE [Suspect]
     Indication: CROHN'S DISEASE
     Route: 042
     Dates: start: 20101103
  8. REMICADE [Suspect]
     Route: 042
     Dates: start: 20110502
  9. VITAMIN B-12 [Concomitant]
  10. REMICADE [Suspect]
     Route: 042
     Dates: start: 20101229
  11. ANTIDEPRESSANTS [Concomitant]
  12. REMICADE [Suspect]
     Dosage: 48 INFUSIONS AT 5MG/KG
     Route: 042
     Dates: start: 20020531, end: 20100908

REACTIONS (2)
  - STAG HORN CALCULUS [None]
  - CALCULUS URETERIC [None]
